FAERS Safety Report 14895398 (Version 1)
Quarter: 2018Q2

REPORT INFORMATION
  Report Type: Spontaneous
  Country: NL (occurrence: NL)
  Receive Date: 20180515
  Receipt Date: 20180515
  Transmission Date: 20180711
  Serious: Yes (Other)
  Sender: FDA-Public Use
  Company Number: NL-009507513-1805NLD003633

PATIENT
  Age: 73 Year
  Sex: Male

DRUGS (1)
  1. BCG LIVE [Suspect]
     Active Substance: BACILLUS CALMETTE-GUERIN SUBSTRAIN TICE LIVE ANTIGEN
     Indication: BLADDER CANCER
     Dosage: UNK, QW
     Route: 043
     Dates: start: 2013, end: 2013

REACTIONS (3)
  - Mycobacterial infection [Recovering/Resolving]
  - Aortic aneurysm [Recovered/Resolved]
  - Infective aneurysm [Recovered/Resolved]

NARRATIVE: CASE EVENT DATE: 2015
